APPROVED DRUG PRODUCT: ISOETHARINE HYDROCHLORIDE
Active Ingredient: ISOETHARINE HYDROCHLORIDE
Strength: 0.08%
Dosage Form/Route: SOLUTION;INHALATION
Application: A088144 | Product #001
Applicant: BAXTER HEALTHCARE CORP
Approved: Jul 29, 1983 | RLD: No | RS: No | Type: DISCN